FAERS Safety Report 18357219 (Version 1)
Quarter: 2020Q4

REPORT INFORMATION
  Report Type: Spontaneous
  Country: FR (occurrence: FR)
  Receive Date: 20201007
  Receipt Date: 20201007
  Transmission Date: 20210114
  Serious: Yes (Other)
  Sender: FDA-Public Use
  Company Number: FR-MYLANLABS-2020M1084298

PATIENT
  Age: 39 Year
  Sex: Female
  Weight: 115 kg

DRUGS (9)
  1. C?FAZOLINE MYLAN 2 G, POUDRE POUR SOLUTION INJECTABLE (IM-IV) [Suspect]
     Active Substance: CEFAZOLIN SODIUM
     Indication: ANTIBIOTIC PROPHYLAXIS
     Dosage: 2 GRAM, TOTAL
     Route: 042
     Dates: start: 20200907, end: 20200907
  2. NORADRENALINE MYLAN [Suspect]
     Active Substance: NOREPINEPHRINE\NOREPINEPHRINE BITARTRATE
     Indication: HAEMODYNAMIC INSTABILITY
     Dosage: UNK
     Route: 041
     Dates: start: 20200907, end: 20200907
  3. MANNITOL MACOPHARM [Suspect]
     Active Substance: MANNITOL
     Indication: PROPHYLAXIS
     Dosage: 20 MILLILITER, TOTAL
     Route: 041
     Dates: start: 20200907, end: 20200907
  4. PARACETAMOL MACOPHARMA [Suspect]
     Active Substance: ACETAMINOPHEN
     Indication: PAIN
     Dosage: 1 GRAM, TOTAL
     Route: 042
     Dates: start: 20200907, end: 20200907
  5. LAMOTRIGINE. [Concomitant]
     Active Substance: LAMOTRIGINE
     Dosage: UNK
  6. THIOPENTAL SODIQUE [Suspect]
     Active Substance: THIOPENTAL SODIUM
     Indication: INDUCTION OF ANAESTHESIA
     Dosage: 625 MILLIGRAM, TOTAL
     Route: 042
     Dates: start: 20200907, end: 20200907
  7. SUFENTANIL MYLAN 50 MICROGRAMMES/ML SOLUTION INJECTABLE [Suspect]
     Active Substance: SUFENTANIL
     Indication: INDUCTION OF ANAESTHESIA
     Dosage: UNK
     Route: 042
     Dates: start: 20200907, end: 20200907
  8. EPHEDRINE AGUETTANT [Suspect]
     Active Substance: EPHEDRINE
     Indication: PROPHYLAXIS
     Dosage: 15 MILLIGRAM, TOTAL
     Route: 042
     Dates: start: 20200907, end: 20200907
  9. ATRACURIUM HOSPIRA [Suspect]
     Active Substance: ATRACURIUM BESYLATE
     Indication: INDUCTION OF ANAESTHESIA
     Dosage: UNK
     Route: 042
     Dates: start: 20200907, end: 20200907

REACTIONS (1)
  - Erythema [Recovered/Resolved]

NARRATIVE: CASE EVENT DATE: 20200907
